FAERS Safety Report 10340004 (Version 1)
Quarter: 2014Q3

REPORT INFORMATION
  Report Type: Report from Study
  Country: NL (occurrence: NL)
  Receive Date: 20140724
  Receipt Date: 20140724
  Transmission Date: 20150326
  Serious: Yes (Hospitalization)
  Sender: FDA-Public Use
  Company Number: PHHY2014NL090784

PATIENT
  Age: 52 Year
  Sex: Female

DRUGS (11)
  1. VALGANCICLOVIR//VALGANCICLOVIR HYDROCHLORIDE [Concomitant]
     Indication: CYTOMEGALOVIRUS INFECTION
     Dosage: 1800 MG
     Route: 048
     Dates: start: 20140614
  2. CO-TRIMOXAZOLE                     /00086101/ [Concomitant]
     Dosage: 480 MG
     Route: 048
  3. RITUXIMAB [Suspect]
     Active Substance: RITUXIMAB
     Dosage: 375 MG/M2, QW
     Route: 042
     Dates: start: 20140527
  4. CICLOSPORINE [Concomitant]
     Active Substance: CYCLOSPORINE
     Indication: CHRONIC GRAFT VERSUS HOST DISEASE
     Dosage: 150 MG
     Route: 048
  5. RITUXIMAB [Suspect]
     Active Substance: RITUXIMAB
     Dosage: 375 MG/M2, QW
     Route: 042
     Dates: start: 20140520
  6. NILOTINIB [Suspect]
     Active Substance: NILOTINIB
     Indication: CHRONIC GRAFT VERSUS HOST DISEASE
     Dosage: 300 MG, BID
     Route: 048
     Dates: start: 20140703, end: 20140714
  7. POSACONAZOLE [Concomitant]
     Active Substance: POSACONAZOLE
     Indication: ANTIFUNGAL PROPHYLAXIS
     Dosage: 600 MG, PERDAY
     Route: 048
     Dates: start: 20140630, end: 20140714
  8. PREDNISOLONE. [Concomitant]
     Active Substance: PREDNISOLONE
     Indication: CHRONIC GRAFT VERSUS HOST DISEASE
     Dosage: 57.5 MG, PER DAY
     Route: 048
     Dates: start: 20140310
  9. NILOTINIB [Suspect]
     Active Substance: NILOTINIB
     Indication: OFF LABEL USE
  10. RITUXIMAB [Suspect]
     Active Substance: RITUXIMAB
     Dosage: 375 MG/M2, QW
     Route: 042
     Dates: start: 20140603
  11. RITUXIMAB [Suspect]
     Active Substance: RITUXIMAB
     Dosage: 375 MG/M2, QW
     Route: 042
     Dates: start: 20140611

REACTIONS (2)
  - Pancreatitis [Unknown]
  - Hyperbilirubinaemia [Unknown]

NARRATIVE: CASE EVENT DATE: 20140714
